FAERS Safety Report 13027350 (Version 1)
Quarter: 2016Q4

REPORT INFORMATION
  Report Type: Spontaneous
  Country: US (occurrence: US)
  Receive Date: 20161214
  Receipt Date: 20161214
  Transmission Date: 20170207
  Serious: No
  Sender: FDA-Public Use
  Company Number: US-ENDO PHARMACEUTICALS INC.-2016-003737

PATIENT
  Sex: Female
  Weight: 81.72 kg

DRUGS (3)
  1. HYDROCODONE BITARTRATE AND ACETAMINOPHEN [Suspect]
     Active Substance: ACETAMINOPHEN\HYDROCODONE BITARTRATE
     Indication: PAIN
     Dosage: ONE 10MG/325MG TABLET AS NEEDED. SOMETIMES CUT TABLET IN HALF
     Route: 048
     Dates: start: 201602
  2. CLONAZEPAM 1MG [Concomitant]
     Active Substance: CLONAZEPAM
     Indication: PANIC ATTACK
  3. CLONAZEPAM 1MG [Concomitant]
     Active Substance: CLONAZEPAM
     Indication: SLEEP DISORDER

REACTIONS (3)
  - Drug ineffective [Unknown]
  - Abdominal pain upper [Unknown]
  - Dyspepsia [Unknown]

NARRATIVE: CASE EVENT DATE: 201605
